FAERS Safety Report 7574443-1 (Version None)
Quarter: 2011Q2

REPORT INFORMATION
  Report Type: 
  Country: None (occurrence: None)
  Receive Date: 20110627
  Receipt Date: 20101124
  Transmission Date: 20111010
  Serious: Yes (Hospitalization, Other)
  Sender: FDA-Public Use
  Company Number: US-BAYER-201019703NA

PATIENT
  Age: 14 Year
  Sex: Female
  Weight: 110 kg

DRUGS (13)
  1. YASMIN [Suspect]
     Indication: ACNE
     Dosage: UNK
     Route: 048
     Dates: start: 20080101, end: 20090101
  2. RANITIDINE [Concomitant]
     Route: 048
  3. PROVERA [Concomitant]
     Dosage: UNK
     Dates: start: 20080930
  4. HYDROXYZINE [Concomitant]
     Indication: MULTIPLE ALLERGIES
     Route: 048
  5. YAZ [Suspect]
     Indication: PREMENSTRUAL SYNDROME
  6. YAZ [Suspect]
  7. YASMIN [Suspect]
  8. YASMIN [Suspect]
     Indication: PREMENSTRUAL SYNDROME
  9. DROSPIRENONE AND ETHINYL ESTRADIOL [Suspect]
     Indication: PREMENSTRUAL SYNDROME
  10. YAZ [Suspect]
     Indication: ACNE
     Dosage: UNK
     Route: 048
     Dates: start: 20080101, end: 20090101
  11. DROSPIRENONE AND ETHINYL ESTRADIOL [Suspect]
     Indication: ACNE
     Dosage: UNK
     Dates: start: 20080101, end: 20090101
  12. DROSPIRENONE AND ETHINYL ESTRADIOL [Suspect]
  13. SULFAMETHOXAZOLE [Concomitant]
     Route: 048

REACTIONS (7)
  - CHOLECYSTECTOMY [None]
  - GALLBLADDER CHOLESTEROLOSIS [None]
  - DEPRESSION [None]
  - BILIARY NEOPLASM [None]
  - MUSCLE SPASMS [None]
  - CHOLELITHIASIS [None]
  - CHOLECYSTITIS CHRONIC [None]
